FAERS Safety Report 16274286 (Version 4)
Quarter: 2020Q1

REPORT INFORMATION
  Report Type: Spontaneous
  Country: US (occurrence: US)
  Receive Date: 20190504
  Receipt Date: 20200211
  Transmission Date: 20200409
  Serious: Yes (Hospitalization, Other)
  Sender: FDA-Public Use
  Company Number: US-AUROBINDO-AUR-APL-2019-023643

PATIENT
  Sex: Female

DRUGS (3)
  1. VENLAFAXINE HYDROCHLORIDE EXTENDED-RELEASE CAPSULES 75MG [Suspect]
     Active Substance: VENLAFAXINE HYDROCHLORIDE
     Indication: DEPRESSION
     Dosage: ONCE A DAY
     Route: 065
     Dates: start: 201806, end: 20190301
  2. VENLAFAXINE HYDROCHLORIDE EXTENDED-RELEASE CAPSULES 75MG [Suspect]
     Active Substance: VENLAFAXINE HYDROCHLORIDE
     Indication: ANXIETY
  3. PROVENTIL [Concomitant]
     Active Substance: ALBUTEROL
     Indication: ASTHMA
     Dosage: UNK
     Route: 065

REACTIONS (25)
  - Polyuria [Unknown]
  - Gait disturbance [Unknown]
  - Lung disorder [Unknown]
  - Hyperhidrosis [Unknown]
  - Impaired driving ability [Unknown]
  - Blood glucose increased [Not Recovered/Not Resolved]
  - Feeling abnormal [Not Recovered/Not Resolved]
  - Dysgeusia [Unknown]
  - Alopecia [Unknown]
  - Weight decreased [Unknown]
  - Feeling jittery [Unknown]
  - Lethargy [Unknown]
  - Confusional state [Not Recovered/Not Resolved]
  - Asthenia [Unknown]
  - Thirst [Not Recovered/Not Resolved]
  - Diabetes mellitus [Unknown]
  - Anxiety [Unknown]
  - Vision blurred [Unknown]
  - Hyperglycaemic hyperosmolar nonketotic syndrome [Unknown]
  - Inappropriate antidiuretic hormone secretion [Unknown]
  - Bronchospasm [Unknown]
  - Gastrooesophageal reflux disease [Unknown]
  - Loss of personal independence in daily activities [Unknown]
  - Cough [Unknown]
  - Hyponatraemia [Unknown]

NARRATIVE: CASE EVENT DATE: 2018
